FAERS Safety Report 8347002-0 (Version None)
Quarter: 2012Q2

REPORT INFORMATION
  Report Type: 
  Country: None (occurrence: None)
  Receive Date: 20120509
  Receipt Date: 20120508
  Transmission Date: 20120825
  Serious: Yes (Death)
  Sender: FDA-Public Use
  Company Number: DE-ABBOTT-12P-062-0933186-00

PATIENT
  Sex: Male
  Weight: 40 kg

DRUGS (2)
  1. TRUVADA [Suspect]
     Indication: PRODUCT USED FOR UNKNOWN INDICATION
     Dates: start: 20080418
  2. KALETRA [Suspect]
     Indication: HIV INFECTION
     Dates: start: 20080418

REACTIONS (1)
  - CARDIAC ARREST [None]
